FAERS Safety Report 10226802 (Version 2)
Quarter: 2014Q2

REPORT INFORMATION
  Report Type: Report from Study
  Country: CA (occurrence: CA)
  Receive Date: 20140610
  Receipt Date: 20140610
  Transmission Date: 20141212
  Serious: Yes (Death, Hospitalization)
  Sender: FDA-Public Use
  Company Number: CA-ROCHE-1406903

PATIENT
  Age: 47 Year
  Sex: Male

DRUGS (10)
  1. CAPECITABINE [Suspect]
     Indication: GASTRIC CANCER
     Route: 048
     Dates: start: 20140412, end: 20140521
  2. IRINOTECAN [Suspect]
     Indication: GASTRIC CANCER
     Route: 042
     Dates: start: 20140411, end: 20140521
  3. OXALIPLATIN [Suspect]
     Indication: GASTRIC CANCER
     Route: 042
     Dates: start: 20140411, end: 20140521
  4. PANTOPRAZOL [Concomitant]
     Route: 065
     Dates: start: 20140220
  5. LORAZEPAM [Concomitant]
     Route: 065
     Dates: start: 20140430
  6. SENOKOT [Concomitant]
     Route: 065
     Dates: start: 20140301
  7. MAGNESIUM CITRATE [Concomitant]
     Route: 065
     Dates: start: 201403
  8. LACTULOSE [Concomitant]
     Route: 065
     Dates: start: 20140502
  9. TARGIN [Concomitant]
     Route: 065
     Dates: start: 20140502
  10. METOCLOPRAMIDE [Concomitant]
     Route: 065
     Dates: start: 20140507

REACTIONS (1)
  - Abdominal pain upper [Fatal]
